FAERS Safety Report 16975406 (Version 1)
Quarter: 2019Q4

REPORT INFORMATION
  Report Type: Spontaneous
  Country: BR (occurrence: BR)
  Receive Date: 20191030
  Receipt Date: 20191030
  Transmission Date: 20200122
  Serious: Yes (Hospitalization)
  Sender: FDA-Public Use
  Company Number: BR-ABBVIE-19P-020-2982172-00

PATIENT
  Sex: Female

DRUGS (2)
  1. MACRODANTIN [Concomitant]
     Active Substance: NITROFURANTOIN
     Indication: PROPHYLAXIS
     Dosage: DAILY DOSE: USED CONTINUOUSLY; CHANGED DURING HOSPITALIZATION
  2. SYNTHROID [Suspect]
     Active Substance: LEVOTHYROXINE SODIUM
     Indication: HORMONE THERAPY
     Dosage: DAILY DOSE: USED HER WHOLE LIFE.?DAILY DOSE: ADMINISTERED CRUSHED IN FEEDING TUBE
     Route: 048

REACTIONS (13)
  - Urinary tract infection [Recovered/Resolved]
  - Asthenia [Unknown]
  - Aspiration [Unknown]
  - Nausea [Not Recovered/Not Resolved]
  - Product use issue [Unknown]
  - Vomiting [Recovering/Resolving]
  - Pneumonia [Recovered/Resolved]
  - Complication associated with device [Unknown]
  - Decreased appetite [Recovering/Resolving]
  - Gastritis [Recovering/Resolving]
  - Dysphagia [Unknown]
  - Hiatus hernia [Not Recovered/Not Resolved]
  - Off label use [Unknown]
